FAERS Safety Report 4947154-6 (Version None)
Quarter: 2006Q1

REPORT INFORMATION
  Report Type: 
  Country: None (occurrence: None)
  Receive Date: 20060201
  Receipt Date: 20051003
  Transmission Date: 20060701
  Serious: No
  Sender: FDA-Public Use
  Company Number: 2005PV002881

PATIENT
  Age: 72 Year
  Sex: Female
  Weight: 77.1115 kg

DRUGS (6)
  1. BYETTA [Suspect]
     Indication: DIABETES MELLITUS NON-INSULIN-DEPENDENT
     Dosage: 5 MCG; BID; SC;  10 MCG; BID; SC;  5 MCG; BID; SC
     Route: 058
     Dates: start: 20050801, end: 20050923
  2. BYETTA [Suspect]
     Indication: DIABETES MELLITUS NON-INSULIN-DEPENDENT
     Dosage: 5 MCG; BID; SC;  10 MCG; BID; SC;  5 MCG; BID; SC
     Route: 058
     Dates: start: 20050924, end: 20051002
  3. BYETTA [Suspect]
     Indication: DIABETES MELLITUS NON-INSULIN-DEPENDENT
     Dosage: 5 MCG; BID; SC;  10 MCG; BID; SC;  5 MCG; BID; SC
     Route: 058
     Dates: start: 20051003
  4. GLUCOPHAGE   BRISTOL-MYEARS SQUIBB [Concomitant]
  5. GLYBURIDE [Concomitant]
  6. NOVOLOG [Concomitant]

REACTIONS (8)
  - DECREASED APPETITE [None]
  - DIARRHOEA [None]
  - DYSPEPSIA [None]
  - FEELING ABNORMAL [None]
  - MALAISE [None]
  - STOMACH DISCOMFORT [None]
  - VOMITING [None]
  - WEIGHT DECREASED [None]
